FAERS Safety Report 7007751-3 (Version None)
Quarter: 2010Q3

REPORT INFORMATION
  Report Type: 
  Country: None (occurrence: None)
  Receive Date: 20100922
  Receipt Date: 20100914
  Transmission Date: 20110219
  Serious: Yes (Hospitalization, Other)
  Sender: FDA-Public Use
  Company Number: US-B.I. PHARMACEUTICALS,INC./RIDGEFIELD-2010-BP-10413BP

PATIENT
  Sex: Male
  Weight: 86.18 kg

DRUGS (9)
  1. FLOMAX [Suspect]
     Indication: BENIGN PROSTATIC HYPERPLASIA
     Dates: start: 20080101
  2. HEPARIN SODIUM [Suspect]
     Indication: CORONARY ARTERY BYPASS
     Dosage: 25000 U
     Route: 042
     Dates: start: 20071218, end: 20071218
  3. HEPARIN SODIUM [Suspect]
     Route: 042
     Dates: start: 20071230, end: 20080106
  4. HEPARIN SODIUM [Suspect]
     Route: 042
     Dates: start: 20080210, end: 20100211
  5. LIPITOR [Concomitant]
  6. CENTRUM SILVER [Concomitant]
  7. LISINOPRIL [Concomitant]
  8. CLARITIN [Concomitant]
  9. LOVENOX [Concomitant]
     Dosage: 170 MG
     Route: 058
     Dates: start: 20071217

REACTIONS (8)
  - ANAEMIA [None]
  - GASTRITIS [None]
  - HELICOBACTER INFECTION [None]
  - HYPOTENSION [None]
  - INCISIONAL DRAINAGE [None]
  - INTESTINAL MASS [None]
  - LOSS OF CONSCIOUSNESS [None]
  - POSTOPERATIVE WOUND INFECTION [None]
